FAERS Safety Report 4935502-2 (Version None)
Quarter: 2006Q1

REPORT INFORMATION
  Report Type: 
  Country: None (occurrence: None)
  Receive Date: 20060307
  Receipt Date: 20060228
  Transmission Date: 20060701
  Serious: Yes (Hospitalization)
  Sender: FDA-Public Use
  Company Number: MX-GLAXOSMITHKLINE-A0595797A

PATIENT
  Age: 19 Year
  Sex: Male

DRUGS (5)
  1. ZOFRAN [Suspect]
     Indication: VOMITING
     Dosage: 8MG PER DAY
     Route: 042
     Dates: start: 20060216, end: 20060216
  2. VINCRISTINE [Concomitant]
  3. CYCLOPHOSPHAMIDE [Concomitant]
     Indication: DRUG USE FOR UNKNOWN INDICATION
  4. BLEOMYCIN [Concomitant]
  5. ETOPOSIDE [Concomitant]

REACTIONS (3)
  - BURNING SENSATION [None]
  - ERYTHEMA [None]
  - RASH PAPULAR [None]
